FAERS Safety Report 13337083 (Version 1)
Quarter: 2017Q1

REPORT INFORMATION
  Report Type: Spontaneous
  Country: US (occurrence: US)
  Receive Date: 20170314
  Receipt Date: 20170314
  Transmission Date: 20170428
  Serious: No
  Sender: FDA-Public Use
  Company Number: US-JAZZ-2016-US-006035

PATIENT
  Age: 28 Year
  Sex: Female

DRUGS (5)
  1. CLOZAPINE. [Suspect]
     Active Substance: CLOZAPINE
     Indication: SCHIZOAFFECTIVE DISORDER
     Dosage: 12.5-300 MG (DOSE VARIANCE), QD
     Route: 048
  2. FLUPHENAZINE HCL [Concomitant]
     Active Substance: FLUPHENAZINE HYDROCHLORIDE
  3. OLANZAPINE. [Concomitant]
     Active Substance: OLANZAPINE
  4. CLONAZEPAM. [Concomitant]
     Active Substance: CLONAZEPAM
  5. QUETIAPINE FUMARATE. [Concomitant]
     Active Substance: QUETIAPINE FUMARATE

REACTIONS (2)
  - Sedation [Recovered/Resolved]
  - Tachycardia [Recovered/Resolved]
